FAERS Safety Report 6592825-1 (Version None)
Quarter: 2010Q1

REPORT INFORMATION
  Report Type: 
  Country: None (occurrence: None)
  Receive Date: 20100212
  Receipt Date: 20100127
  Transmission Date: 20100710
  Serious: Yes (Other)
  Sender: FDA-Public Use
  Company Number: DSA_42503_2010

PATIENT
  Sex: Male

DRUGS (1)
  1. ATIVAN [Suspect]
     Indication: DRUG USE FOR UNKNOWN INDICATION
     Dosage: (6 MG 1X)
     Dates: start: 20100101

REACTIONS (8)
  - ACCIDENTAL OVERDOSE [None]
  - AGITATION [None]
  - CRYING [None]
  - EYE SWELLING [None]
  - EYELID PTOSIS [None]
  - INABILITY TO CRAWL [None]
  - INSOMNIA [None]
  - RASH [None]
